FAERS Safety Report 11319514 (Version 1)
Quarter: 2015Q3

REPORT INFORMATION
  Report Type: Spontaneous
  Country: TN (occurrence: TN)
  Receive Date: 20150729
  Receipt Date: 20150729
  Transmission Date: 20151125
  Serious: Yes (Death, Other)
  Sender: FDA-Public Use
  Company Number: PHHY2015TN073265

PATIENT
  Age: 35 Year
  Sex: Male
  Weight: 63 kg

DRUGS (2)
  1. SANDOSTATIN LAR DEPOT [Suspect]
     Active Substance: OCTREOTIDE ACETATE
     Indication: NEUROENDOCRINE TUMOUR
     Dosage: 30 MG, QMO
     Route: 030
     Dates: start: 20141013, end: 20150522
  2. SUTENT [Concomitant]
     Active Substance: SUNITINIB MALATE
     Indication: NEUROENDOCRINE TUMOUR
     Dosage: 37.5 MG, UNK
     Route: 065

REACTIONS (3)
  - Portal hypertension [Unknown]
  - Gastrointestinal haemorrhage [Fatal]
  - Liver disorder [Fatal]

NARRATIVE: CASE EVENT DATE: 201505
